FAERS Safety Report 4749408-5 (Version None)
Quarter: 2005Q3

REPORT INFORMATION
  Report Type: 
  Country: None (occurrence: None)
  Receive Date: 20050819
  Receipt Date: 20050513
  Transmission Date: 20060218
  Serious: Yes (Hospitalization, Disabling, Other)
  Sender: FDA-Public Use
  Company Number: US-MERCK-0505USA01949

PATIENT
  Age: 53 Year
  Sex: Female
  Weight: 98 kg

DRUGS (2)
  1. VIOXX [Suspect]
     Indication: SHOULDER PAIN
     Route: 048
     Dates: start: 19990101, end: 20040901
  2. ASPIRIN [Concomitant]
     Route: 065

REACTIONS (6)
  - ANGINA UNSTABLE [None]
  - ANXIETY DISORDER [None]
  - CORONARY ARTERY DISEASE [None]
  - HYPERTENSION [None]
  - MYOCARDIAL INFARCTION [None]
  - PANIC DISORDER [None]
